FAERS Safety Report 4529616-9 (Version None)
Quarter: 2004Q4

REPORT INFORMATION
  Report Type: 
  Country: None (occurrence: None)
  Receive Date: 20041214
  Receipt Date: 20041103
  Transmission Date: 20050328
  Serious: Yes (Hospitalization)
  Sender: FDA-Public Use
  Company Number: A03200403701

PATIENT
  Age: 40 Year
  Sex: Female

DRUGS (2)
  1. AMBIEN [Suspect]
     Indication: INSOMNIA
     Dosage: ORAL
     Route: 048
  2. ALCOHOL - UNKNOWN - UNIT DOSE : UNKNOWN [Suspect]

REACTIONS (5)
  - ALCOHOLIC [None]
  - CONDITION AGGRAVATED [None]
  - DEPRESSION [None]
  - DRUG DEPENDENCE [None]
  - DRUG TOXICITY [None]
